FAERS Safety Report 6540456-1 (Version None)
Quarter: 2010Q1

REPORT INFORMATION
  Report Type: 
  Country: None (occurrence: None)
  Receive Date: 20100113
  Receipt Date: 20100106
  Transmission Date: 20100710
  Serious: Yes (Hospitalization, Other)
  Sender: FDA-Public Use
  Company Number: URSO-2010-001

PATIENT
  Age: 76 Year
  Sex: Male

DRUGS (3)
  1. URSODIOL [Suspect]
     Indication: CHOLANGITIS SCLEROSING
     Dosage: 900MG
  2. AZANIN (AZATHIOPRINE) [Suspect]
     Indication: EOSINOPHILIA
     Dosage: 50MG
  3. PREDNISOLONE [Suspect]
     Dosage: 40MG DAILY ORAL
     Route: 048

REACTIONS (1)
  - BILIARY TRACT INFECTION [None]
